FAERS Safety Report 17292209 (Version 1)
Quarter: 2020Q1

REPORT INFORMATION
  Report Type: Spontaneous
  Country: PT (occurrence: PT)
  Receive Date: 20200121
  Receipt Date: 20200121
  Transmission Date: 20200409
  Serious: Yes (Other)
  Sender: FDA-Public Use
  Company Number: PT-BAYER-2019-224046

PATIENT
  Age: 22 Year
  Sex: Male
  Weight: 174 kg

DRUGS (3)
  1. ULTRAVIST [Suspect]
     Active Substance: IOPROMIDE
     Indication: DIAGNOSTIC PROCEDURE
     Dosage: 90 ML
     Route: 042
     Dates: start: 20191126, end: 20191126
  2. ULTRAVIST [Suspect]
     Active Substance: IOPROMIDE
     Indication: TESTICULAR PAIN
  3. ULTRAVIST [Suspect]
     Active Substance: IOPROMIDE
     Indication: BACK PAIN

REACTIONS (1)
  - Rash [Recovered/Resolved]

NARRATIVE: CASE EVENT DATE: 20191126
